FAERS Safety Report 8063540-2 (Version None)
Quarter: 2012Q1

REPORT INFORMATION
  Report Type: 
  Country: None (occurrence: None)
  Receive Date: 20120123
  Receipt Date: 20120112
  Transmission Date: 20120608
  Serious: Yes (Other)
  Sender: FDA-Public Use
  Company Number: FR-BRISTOL-MYERS SQUIBB COMPANY-16205627

PATIENT
  Age: 72 Year
  Sex: Male
  Weight: 101 kg

DRUGS (7)
  1. CLONIDINE [Concomitant]
     Indication: HYPERTENSION
     Route: 048
     Dates: start: 19980101
  2. CRESTOR [Concomitant]
     Indication: DYSLIPIDAEMIA
     Route: 048
     Dates: start: 20070101
  3. ONGLYZA [Suspect]
     Indication: TYPE 2 DIABETES MELLITUS
     Route: 048
     Dates: start: 20110901, end: 20110914
  4. ACARBOSE [Concomitant]
     Indication: DIABETES MELLITUS
     Dosage: GLUCOR 100MG
     Route: 048
     Dates: start: 20110101
  5. METFORMIN HCL [Suspect]
  6. ALFUZOSIN HCL [Concomitant]
     Indication: BENIGN PROSTATIC HYPERPLASIA
     Route: 048
     Dates: start: 20060101
  7. AMARYL [Concomitant]
     Indication: DIABETES MELLITUS
     Route: 048
     Dates: start: 20110101

REACTIONS (1)
  - OEDEMA PERIPHERAL [None]
